FAERS Safety Report 8389053-6 (Version None)
Quarter: 2012Q2

REPORT INFORMATION
  Report Type: 
  Country: None (occurrence: None)
  Receive Date: 20120528
  Receipt Date: 20120521
  Transmission Date: 20120825
  Serious: Yes (Other)
  Sender: FDA-Public Use
  Company Number: PHHY2012JP027731

PATIENT
  Sex: Female

DRUGS (8)
  1. EXELON [Suspect]
     Dosage: 13.5 MG, DAILY
     Route: 062
     Dates: start: 20120320, end: 20120323
  2. PRIMPERAN TAB [Concomitant]
     Indication: VOMITING
     Dosage: 3 DF, UNK
     Route: 048
     Dates: start: 20120330
  3. EXELON [Suspect]
     Dosage: 9 MG, DAILY
     Route: 062
     Dates: start: 20120221, end: 20120319
  4. EXELON [Suspect]
     Indication: DEMENTIA ALZHEIMER'S TYPE
     Dosage: 4.5 MG, DAILY
     Route: 062
     Dates: start: 20120206, end: 20120220
  5. GARENOXACIN MESYLATE [Concomitant]
     Dosage: 400 MG, UNK
     Route: 048
     Dates: start: 20020120, end: 20120124
  6. DUOACTIVE [Concomitant]
  7. MUCOSTA [Concomitant]
     Dosage: 2 DF, UNK
     Route: 048
     Dates: start: 20120330
  8. GALANTAMINE HYDROBROMIDE [Concomitant]
     Indication: DEMENTIA ALZHEIMER'S TYPE
     Route: 048

REACTIONS (1)
  - LIVER DISORDER [None]
